FAERS Safety Report 9543908 (Version 4)
Quarter: 2014Q1

REPORT INFORMATION
  Report Type: Report from Study
  Country: BE (occurrence: BE)
  Receive Date: 20130923
  Receipt Date: 20140110
  Transmission Date: 20141002
  Serious: Yes (Death, Hospitalization)
  Sender: FDA-Public Use
  Company Number: BE-PFIZER INC-2013269277

PATIENT
  Age: 62 Year
  Sex: Male

DRUGS (5)
  1. NEORAL [Suspect]
     Indication: KIDNEY TRANSPLANT REJECTION
     Dosage: 125 MG (75 + 50) ON DAY 1
     Route: 048
     Dates: start: 20081109, end: 20081109
  2. NEORAL [Suspect]
     Dosage: 100 MG (50 + 50) ON DAY 2
     Route: 048
     Dates: start: 20081110, end: 20081110
  3. NEORAL [Suspect]
     Dosage: 112.5 MG, UNK
     Route: 048
     Dates: start: 20091103, end: 20100122
  4. MEDROL [Suspect]
     Dosage: 4 MG, UNK
  5. IMURAN [Suspect]
     Indication: IMMUNOSUPPRESSION
     Dosage: UNK
     Dates: start: 20100122

REACTIONS (3)
  - Sepsis [Fatal]
  - Respiratory distress [Unknown]
  - Pneumothorax [Not Recovered/Not Resolved]
